FAERS Safety Report 18561061 (Version 1)
Quarter: 2020Q4

REPORT INFORMATION
  Report Type: Spontaneous
  Country: US (occurrence: US)
  Receive Date: 20201130
  Receipt Date: 20201130
  Transmission Date: 20210114
  Serious: No
  Sender: FDA-Public Use
  Company Number: US-TAKEDA-2020TUS044414

PATIENT
  Sex: Female
  Weight: 72.11 kg

DRUGS (15)
  1. CLOBETASOL [Concomitant]
     Active Substance: CLOBETASOL
  2. VALACYCLOVIR [Concomitant]
     Active Substance: VALACYCLOVIR HYDROCHLORIDE
  3. TRIAMCINOLONE [Concomitant]
     Active Substance: TRIAMCINOLONE
  4. VITAMINS NOS [Concomitant]
     Active Substance: VITAMINS
  5. DIPHENHYDRAMINE. [Concomitant]
     Active Substance: DIPHENHYDRAMINE
  6. HYQVIA [Suspect]
     Active Substance: HUMAN IMMUNOGLOBULIN G\HYALURONIDASE RECOMBINANT HUMAN
     Indication: IMMUNODEFICIENCY COMMON VARIABLE
     Dosage: 25 GRAM, Q4WEEKS
     Route: 058
     Dates: start: 20140723
  7. MOMETASONE FUROATE. [Concomitant]
     Active Substance: MOMETASONE FUROATE
  8. NORMAL SALINE [Concomitant]
     Active Substance: SODIUM CHLORIDE
  9. LIDOCAINE/PRILOCAINE [Concomitant]
     Active Substance: LIDOCAINE\PRILOCAINE
  10. XIIDRA [Concomitant]
     Active Substance: LIFITEGRAST
  11. IBUPROFEN. [Concomitant]
     Active Substance: IBUPROFEN
  12. ZOVIRAX [Concomitant]
     Active Substance: ACYCLOVIR
  13. EPINEPHRINE. [Concomitant]
     Active Substance: EPINEPHRINE
  14. HYDROEYE [Concomitant]
     Active Substance: MINERALS\OMEGA-3 FATTY ACIDS\VITAMINS
  15. SYNTHROID [Concomitant]
     Active Substance: LEVOTHYROXINE SODIUM

REACTIONS (1)
  - Urinary tract infection [Unknown]
